FAERS Safety Report 5618969-6 (Version None)
Quarter: 2008Q1

REPORT INFORMATION
  Report Type: 
  Country: None (occurrence: None)
  Receive Date: 20080204
  Receipt Date: 20050123
  Transmission Date: 20080703
  Serious: Yes (Other)
  Sender: FDA-Public Use
  Company Number: CHNY2008DE00655

PATIENT
  Age: 5 Year
  Sex: Female

DRUGS (1)
  1. XYLOMETAZOLINE HYDROCHLORIDE (NCH)(CYLOMETAZOLINE HYDROCHLORIDE) DROPS [Suspect]

REACTIONS (1)
  - HALLUCINATION, VISUAL [None]
